FAERS Safety Report 24374563 (Version 3)
Quarter: 2025Q2

REPORT INFORMATION
  Report Type: Spontaneous
  Country: US (occurrence: US)
  Receive Date: 20240927
  Receipt Date: 20250612
  Transmission Date: 20250717
  Serious: Yes (Hospitalization)
  Sender: SANOFI AVENTIS
  Company Number: US-SA-2024SA271243

PATIENT
  Age: 73 Year
  Sex: Female
  Weight: 99.55 kg

DRUGS (19)
  1. REZUROCK [Suspect]
     Active Substance: BELUMOSUDIL
     Indication: Chronic graft versus host disease
     Dosage: 200 MG, BID
     Route: 048
     Dates: start: 202402, end: 20240912
  2. REZUROCK [Suspect]
     Active Substance: BELUMOSUDIL
     Dosage: 200 MG, BID
     Route: 048
     Dates: start: 20240919
  3. CEQUA [Concomitant]
     Active Substance: CYCLOSPORINE
  4. LOPERAMIDE [Concomitant]
     Active Substance: LOPERAMIDE
  5. OMEPRAZOLE [Concomitant]
     Active Substance: OMEPRAZOLE
  6. VITAMINS [Concomitant]
     Active Substance: VITAMINS
  7. VITAMIN D3 [Concomitant]
     Active Substance: CHOLECALCIFEROL
  8. AMLODIPINE [Concomitant]
     Active Substance: AMLODIPINE BESYLATE
  9. LISINOPRIL [Concomitant]
     Active Substance: LISINOPRIL
  10. CALCIUM CARBONATE [Concomitant]
     Active Substance: CALCIUM CARBONATE
  11. PENICILLIN V POTASSIUM [PHENOXYMETHYLPENICILLIN] [Concomitant]
  12. ROSUVASTATIN [Concomitant]
     Active Substance: ROSUVASTATIN
  13. ACYCLOVIR [Concomitant]
     Active Substance: ACYCLOVIR
  14. ELIQUIS [Concomitant]
     Active Substance: APIXABAN
  15. PREDNISONE [Concomitant]
     Active Substance: PREDNISONE
  16. COENZYME Q10 [Concomitant]
     Active Substance: DIETARY SUPPLEMENT\UBIDECARENONE
  17. TRIAMCINOLONE [Concomitant]
     Active Substance: TRIAMCINOLONE
  18. VITAMIN D [Concomitant]
     Active Substance: VITAMIN D NOS
  19. ATOVAQUONE [Concomitant]
     Active Substance: ATOVAQUONE

REACTIONS (3)
  - COVID-19 [Recovered/Resolved]
  - Neurotransmitter level altered [Recovering/Resolving]
  - Diarrhoea [Unknown]
